FAERS Safety Report 18151954 (Version 1)
Quarter: 2020Q3

REPORT INFORMATION
  Report Type: Spontaneous
  Country: US (occurrence: US)
  Receive Date: 20200814
  Receipt Date: 20200814
  Transmission Date: 20201103
  Serious: Yes (Other)
  Sender: FDA-Public Use
  Company Number: US-PURDUE-USA-2020-0161181

PATIENT
  Sex: Male

DRUGS (24)
  1. OXYCODONE/ ACETAMINOPHEN TABLETS [Suspect]
     Active Substance: ACETAMINOPHEN\OXYCODONE HYDROCHLORIDE
     Dosage: 5/325MG, Q6H
     Route: 048
     Dates: start: 2003, end: 2014
  2. METFORMIN [Concomitant]
     Active Substance: METFORMIN HYDROCHLORIDE
     Indication: DIABETES MELLITUS
     Dosage: 500 MG, BID
     Route: 048
  3. GABAPENTIN. [Concomitant]
     Active Substance: GABAPENTIN
     Indication: PRODUCT USED FOR UNKNOWN INDICATION
     Dosage: 300 MG, Q6H
     Route: 048
  4. ASPIRIN BAYER [Concomitant]
     Active Substance: ASPIRIN
     Indication: HEADACHE
     Dosage: UNK, PRN
     Route: 048
  5. TOPROL XL [Concomitant]
     Active Substance: METOPROLOL SUCCINATE
     Indication: HYPERTENSION
     Dosage: 25 MG, DAILY
     Route: 048
  6. OXYCONTIN [Suspect]
     Active Substance: OXYCODONE HYDROCHLORIDE
     Indication: PAIN
     Dosage: UNK
     Route: 048
     Dates: start: 2003, end: 2014
  7. AMBIEN [Concomitant]
     Active Substance: ZOLPIDEM TARTRATE
     Indication: PRODUCT USED FOR UNKNOWN INDICATION
     Dosage: UNK
     Route: 048
  8. VIOXX [Concomitant]
     Active Substance: ROFECOXIB
     Indication: PRODUCT USED FOR UNKNOWN INDICATION
     Dosage: UNK
     Route: 048
  9. LISINOPRIL. [Concomitant]
     Active Substance: LISINOPRIL
     Indication: HYPERTENSION
     Dosage: 20 MG, DAILY
     Route: 048
  10. PERCOCET                           /00446701/ [Suspect]
     Active Substance: ACETAMINOPHEN\OXYCODONE HYDROCHLORIDE\OXYCODONE TEREPHTHALATE
     Indication: PAIN
     Dosage: 10/325MG, UNK
     Route: 048
     Dates: start: 20120606, end: 20120906
  11. PRINIVIL [Concomitant]
     Active Substance: LISINOPRIL
     Indication: PRODUCT USED FOR UNKNOWN INDICATION
     Dosage: UNK
     Route: 048
  12. DURAGESIC [Suspect]
     Active Substance: FENTANYL
     Indication: PAIN
     Dosage: 50 MG, UNK
     Route: 048
     Dates: start: 2003, end: 2014
  13. PAXIL [Concomitant]
     Active Substance: PAROXETINE HYDROCHLORIDE
     Indication: PRODUCT USED FOR UNKNOWN INDICATION
     Dosage: UNK
     Route: 048
  14. GABAPENTIN. [Concomitant]
     Active Substance: GABAPENTIN
     Dosage: 300 MG, TID
     Route: 048
  15. GLIMEPIRIDE. [Concomitant]
     Active Substance: GLIMEPIRIDE
     Indication: DIABETES MELLITUS
     Dosage: 4 MG, DAILY
     Route: 048
  16. OXYCODONE/ ACETAMINOPHEN TABLETS [Suspect]
     Active Substance: ACETAMINOPHEN\OXYCODONE HYDROCHLORIDE
     Indication: PAIN
     Dosage: 10/325MG, Q6H
     Route: 048
     Dates: start: 2003, end: 2014
  17. HYDROCODONE BITARTRATE/ACETAMINOPHEN [Suspect]
     Active Substance: ACETAMINOPHEN\HYDROCODONE BITARTRATE
     Indication: PAIN
     Dosage: UNK
     Route: 048
     Dates: start: 2003, end: 2014
  18. ZETIA [Concomitant]
     Active Substance: EZETIMIBE
     Indication: BLOOD CHOLESTEROL
     Dosage: 5 MG, DAILY
     Route: 048
  19. AVANDIA [Concomitant]
     Active Substance: ROSIGLITAZONE MALEATE
     Indication: PRODUCT USED FOR UNKNOWN INDICATION
     Dosage: UNK
     Route: 048
  20. ROZEREM [Concomitant]
     Active Substance: RAMELTEON
     Indication: INSOMNIA
     Dosage: 8 MG, PRN
     Route: 048
  21. OXYCODONE HYDROCHLORIDE. [Suspect]
     Active Substance: OXYCODONE HYDROCHLORIDE
     Indication: PAIN
     Dosage: UNK
     Route: 048
     Dates: start: 2003, end: 2014
  22. HYDROCODONE BITARTRATE (SIMILAR TO NDA 206627) [Suspect]
     Active Substance: HYDROCODONE BITARTRATE
     Indication: PAIN
     Dosage: UNK
     Route: 048
  23. DURAGESIC [Suspect]
     Active Substance: FENTANYL
     Dosage: 75 MG, ODD DAYS
     Route: 048
     Dates: start: 2003, end: 2014
  24. LORTAB [Suspect]
     Active Substance: ACETAMINOPHEN\HYDROCODONE BITARTRATE
     Indication: PAIN
     Dosage: UNK
     Route: 048

REACTIONS (16)
  - Insomnia [Not Recovered/Not Resolved]
  - Osteoporosis [Not Recovered/Not Resolved]
  - Vomiting [Unknown]
  - Irritability [Unknown]
  - Mood altered [Unknown]
  - Nausea [Unknown]
  - Abdominal pain upper [Recovered/Resolved]
  - Dizziness [Unknown]
  - Constipation [Not Recovered/Not Resolved]
  - Spinal laminectomy [Recovered/Resolved]
  - Anxiety [Unknown]
  - Withdrawal syndrome [Unknown]
  - Pain [Not Recovered/Not Resolved]
  - Drug dependence [Recovered/Resolved]
  - Hypertension [Not Recovered/Not Resolved]
  - Disturbance in attention [Not Recovered/Not Resolved]

NARRATIVE: CASE EVENT DATE: 200709
